FAERS Safety Report 20596876 (Version 4)
Quarter: 2022Q4

REPORT INFORMATION
  Report Type: Report from Study
  Country: US (occurrence: None)
  Receive Date: 20220315
  Receipt Date: 20221018
  Transmission Date: 20230113
  Serious: Yes (Hospitalization)
  Sender: FDA-Public Use
  Company Number: US-ROCHE-3049802

PATIENT
  Age: 69 Year
  Sex: Female
  Weight: 52.9 kg

DRUGS (2)
  1. ATEZOLIZUMAB [Suspect]
     Active Substance: ATEZOLIZUMAB
     Indication: Non-small cell lung cancer
     Dosage: LAST ADMINISTERED DATE ON 17/NOV/2021, 02/JUN/2021
     Route: 041
     Dates: start: 20210602, end: 20210602
  2. COBIMETINIB [Suspect]
     Active Substance: COBIMETINIB
     Indication: Non-small cell lung cancer
     Dosage: LAST ADMINISTERED DATE10/DEC/2021, 21 DOSE WITH MOST RECENT DOSE ON:15/JUN/2021
     Route: 048
     Dates: start: 20210602

REACTIONS (3)
  - Epistaxis [Recovered/Resolved]
  - Urinary tract infection [Recovered/Resolved]
  - Delirium [Recovered/Resolved]

NARRATIVE: CASE EVENT DATE: 20210615
